FAERS Safety Report 25867511 (Version 2)
Quarter: 2025Q4

REPORT INFORMATION
  Report Type: Report from Study
  Country: US (occurrence: US)
  Receive Date: 20251001
  Receipt Date: 20251219
  Transmission Date: 20260117
  Serious: Yes (Hospitalization)
  Sender: ACADIA PHARMACEUTICALS
  Company Number: US-ACADIA PHARMACEUTICALS INC.-ACA-2025-PIM-010688

PATIENT
  Sex: Male

DRUGS (19)
  1. NUPLAZID [Suspect]
     Active Substance: PIMAVANSERIN TARTRATE
     Indication: Hallucination
     Dosage: 34 MILLIGRAM, QD
     Route: 048
     Dates: start: 20240628
  2. ASPIRIN [Concomitant]
     Active Substance: ASPIRIN
     Dosage: EC
  3. ATORVASTATIN [Concomitant]
     Active Substance: ATORVASTATIN
  4. CARBIDOPA\LEVODOPA [Concomitant]
     Active Substance: CARBIDOPA\LEVODOPA
  5. COENZYME Q10 [Concomitant]
     Active Substance: DIETARY SUPPLEMENT\UBIDECARENONE
  6. DONEPEZIL HYDROCHLORIDE [Concomitant]
     Active Substance: DONEPEZIL HYDROCHLORIDE
  7. ENTACAPONE [Concomitant]
     Active Substance: ENTACAPONE
  8. FLUDROCORTISONE [Concomitant]
     Active Substance: FLUDROCORTISONE
  9. GEMTESA [Concomitant]
     Active Substance: VIBEGRON
  10. GRALISE [Concomitant]
     Active Substance: GABAPENTIN
  11. LENALIDOMIDE [Concomitant]
     Active Substance: LENALIDOMIDE
  12. LEXAPRO [Concomitant]
     Active Substance: ESCITALOPRAM OXALATE
  13. LORATADINE [Concomitant]
     Active Substance: LORATADINE
     Dosage: 5-325 MILLIGRAM
  14. MODERNA COVID-19 VACCINE [Concomitant]
     Active Substance: ELASOMERAN
  15. RASAGILINE [Concomitant]
     Active Substance: RASAGILINE
  16. TAMSULOSIN [Concomitant]
     Active Substance: TAMSULOSIN
  17. TYLENOL [Concomitant]
     Active Substance: ACETAMINOPHEN
  18. VITAMIN B12 [Concomitant]
     Active Substance: CYANOCOBALAMIN
  19. VITAMIN D3 [Concomitant]
     Active Substance: CHOLECALCIFEROL

REACTIONS (6)
  - Urinary tract infection [Unknown]
  - Cognitive disorder [Unknown]
  - Condition aggravated [Unknown]
  - Hypotension [Unknown]
  - Gait disturbance [Unknown]
  - Diarrhoea [Not Recovered/Not Resolved]
